FAERS Safety Report 19174543 (Version 5)
Quarter: 2022Q1

REPORT INFORMATION
  Report Type: Report from Study
  Country: CN (occurrence: CN)
  Receive Date: 20210423
  Receipt Date: 20220124
  Transmission Date: 20220423
  Serious: Yes (Other)
  Sender: FDA-Public Use
  Company Number: NVSC2020CN187599

PATIENT
  Age: 53 Year
  Sex: Female

DRUGS (24)
  1. ENTRESTO [Suspect]
     Active Substance: SACUBITRIL\VALSARTAN
     Indication: Cardiac failure chronic
     Dosage: 25 MG, UNKNOWN
     Route: 048
     Dates: start: 20190925, end: 20200402
  2. ENTRESTO [Suspect]
     Active Substance: SACUBITRIL\VALSARTAN
     Dosage: 50 MG, UNKNOWN
     Route: 048
     Dates: start: 20200403, end: 20200724
  3. ENTRESTO [Suspect]
     Active Substance: SACUBITRIL\VALSARTAN
     Dosage: 25 MG, UNKNOWN
     Route: 048
     Dates: start: 20200828
  4. AMIODARONE [Concomitant]
     Active Substance: AMIODARONE
     Indication: Cardiac failure
     Dosage: 0.10 G
     Route: 048
     Dates: start: 20191014, end: 20191027
  5. AMIODARONE [Concomitant]
     Active Substance: AMIODARONE
     Dosage: 0.10 G
     Route: 048
     Dates: start: 20191105, end: 20191202
  6. LEVOTHYROXINE SODIUM [Concomitant]
     Active Substance: LEVOTHYROXINE SODIUM
     Indication: Pre-existing disease
     Dosage: 50 UG
     Route: 048
     Dates: start: 20191014, end: 20191027
  7. TORSEMIDE [Concomitant]
     Active Substance: TORSEMIDE
     Indication: Cardiac failure
     Dosage: 10 MG,
     Route: 048
     Dates: start: 20190920, end: 20191124
  8. TORSEMIDE [Concomitant]
     Active Substance: TORSEMIDE
     Dosage: 10 MG
     Route: 048
     Dates: start: 20191206, end: 20191225
  9. TORSEMIDE [Concomitant]
     Active Substance: TORSEMIDE
     Dosage: 10 MG,
     Route: 048
     Dates: start: 20200131, end: 20200219
  10. TORSEMIDE [Concomitant]
     Active Substance: TORSEMIDE
     Dosage: 10 MG
     Route: 048
     Dates: start: 20200228, end: 20200318
  11. TORSEMIDE [Concomitant]
     Active Substance: TORSEMIDE
     Dosage: 10 MG
     Route: 048
     Dates: start: 20200529, end: 20200617
  12. TORSEMIDE [Concomitant]
     Active Substance: TORSEMIDE
     Dosage: 10 MG
     Route: 048
     Dates: start: 20200403, end: 20200422
  13. SPIRONOLACTONE [Concomitant]
     Active Substance: SPIRONOLACTONE
     Indication: Cardiac failure
     Dosage: 20 MG, UNKNOWN
     Route: 048
     Dates: start: 20190920, end: 20200627
  14. DIGOXIN [Concomitant]
     Active Substance: DIGOXIN
     Indication: Cardiac failure
     Dosage: 0.125 MG
     Route: 048
     Dates: start: 20190920, end: 20200926
  15. TRIMETAZIDINE DIHYDROCHLORIDE [Concomitant]
     Active Substance: TRIMETAZIDINE DIHYDROCHLORIDE
     Indication: Cardiac failure
     Dosage: 35 MG, UNKNOWN
     Route: 048
     Dates: start: 20190920, end: 20191025
  16. WARFARIN SODIUM [Concomitant]
     Active Substance: WARFARIN SODIUM
     Indication: Cardiac failure
     Dosage: 2.25 MG, UNKNOWN
     Route: 048
     Dates: start: 20190920, end: 20200926
  17. METOPROLOL SUCCINATE [Concomitant]
     Active Substance: METOPROLOL SUCCINATE
     Indication: Cardiac failure
     Dosage: 23.75 MG
     Route: 048
     Dates: start: 20190927, end: 20191017
  18. FLUPENTIXOL [Concomitant]
     Active Substance: FLUPENTIXOL
     Indication: Cardiac failure
     Dosage: 1 DF
     Route: 048
     Dates: start: 20200228, end: 20200328
  19. FLUPENTIXOL [Concomitant]
     Active Substance: FLUPENTIXOL
     Indication: Sedation
     Dosage: 1 DF,1 TABLET
     Route: 048
     Dates: start: 20200529, end: 20200607
  20. FLUPENTIXOL [Concomitant]
     Active Substance: FLUPENTIXOL
     Indication: Ill-defined disorder
  21. EUCALYPTOL [Concomitant]
     Active Substance: EUCALYPTOL
     Indication: Pre-existing disease
     Dosage: 0.3 G
     Route: 048
     Dates: start: 20190920, end: 20190926
  22. MELITRACEN [Concomitant]
     Active Substance: MELITRACEN
     Indication: Cardiac failure
     Dosage: 1 DF
     Route: 048
     Dates: start: 20200228, end: 20200328
  23. MELITRACEN [Concomitant]
     Active Substance: MELITRACEN
     Indication: Sedation
  24. MELITRACEN [Concomitant]
     Active Substance: MELITRACEN
     Indication: Ill-defined disorder

REACTIONS (9)
  - Syncope [Recovered/Resolved]
  - Vulvovaginal pruritus [Recovered/Resolved]
  - Fatigue [Recovered/Resolved]
  - Epistaxis [Recovered/Resolved]
  - Vaginal infection [Recovered/Resolved]
  - Chronic sinusitis [Recovered/Resolved]
  - Anxiety [Recovering/Resolving]
  - Wrong technique in product usage process [Recovered/Resolved]
  - Wrong technique in product usage process [Unknown]

NARRATIVE: CASE EVENT DATE: 20190925
